FAERS Safety Report 8333933-4 (Version None)
Quarter: 2012Q2

REPORT INFORMATION
  Report Type: 
  Country: None (occurrence: None)
  Receive Date: 20120503
  Receipt Date: 20110131
  Transmission Date: 20120825
  Serious: No
  Sender: FDA-Public Use
  Company Number: US-TEVA-2011000509

PATIENT
  Sex: Female
  Weight: 54.48 kg

DRUGS (4)
  1. AMBIEN [Concomitant]
     Dates: start: 20080101
  2. EFFEXOR [Concomitant]
     Dates: start: 20080101
  3. NUVIGIL [Suspect]
     Indication: SLEEP APNOEA SYNDROME
     Dosage: 125 MILLIGRAM;
     Route: 048
     Dates: start: 20110119
  4. NUVIGIL [Suspect]
     Indication: DEPRESSION

REACTIONS (1)
  - DIZZINESS [None]
